FAERS Safety Report 15466237 (Version 2)
Quarter: 2018Q4

REPORT INFORMATION
  Report Type: Report from Study
  Country: HR (occurrence: HR)
  Receive Date: 20181004
  Receipt Date: 20181105
  Transmission Date: 20190204
  Serious: Yes (Hospitalization)
  Sender: FDA-Public Use
  Company Number: HR-LPDUSPRD-20181833

PATIENT
  Age: 80 Year
  Sex: Male
  Weight: 89 kg

DRUGS (10)
  1. FLUITICASONPROPIONAAT [Concomitant]
     Dosage: 160 MG, AS REQUIRED
     Route: 048
     Dates: start: 20180412
  2. TELMISARTAN. [Concomitant]
     Active Substance: TELMISARTAN
     Dosage: 80 MG (1 IN 1 D)
     Route: 048
     Dates: start: 20180412
  3. NEBIVOLOL. [Concomitant]
     Active Substance: NEBIVOLOL
     Dosage: 5 MG (5 MG, 1 IN 1 D)
     Route: 048
     Dates: start: 20180412
  4. TEOFILIN [Concomitant]
     Active Substance: THEOPHYLLINE ANHYDROUS
     Dosage: 125 MG, AS REQUIRED
     Route: 048
     Dates: start: 20180412
  5. ALLOPURINOL. [Concomitant]
     Active Substance: ALLOPURINOL
     Dosage: 100 MG (100 MG 1 IN 1 D)
     Route: 048
     Dates: start: 2016
  6. GLIQUIDONE [Concomitant]
     Active Substance: GLIQUIDONE
     Dosage: 30 MG (1 IN 1 D)
     Route: 048
     Dates: start: 20180412
  7. WARFARIN [Concomitant]
     Active Substance: WARFARIN
     Dosage: 3 MG (1 IN 1 D)
     Route: 048
     Dates: start: 2015
  8. SAMETEROL FLUTICASONE [Concomitant]
     Dosage: 320 MG, AS REQUIRED
     Route: 048
     Dates: start: 20180412
  9. FUROSEMID [Concomitant]
     Active Substance: FUROSEMIDE
     Dosage: 40 MG (40 MG, 1 IN 1 D)
     Route: 042
     Dates: start: 20180409, end: 20180417
  10. FERINJECT [Suspect]
     Active Substance: FERRIC CARBOXYMALTOSE
     Dosage: 10 ML
     Route: 040
     Dates: start: 20180418, end: 20180418

REACTIONS (1)
  - Bradyarrhythmia [Recovered/Resolved]

NARRATIVE: CASE EVENT DATE: 20181002
